FAERS Safety Report 8347382-6 (Version None)
Quarter: 2012Q2

REPORT INFORMATION
  Report Type: 
  Country: None (occurrence: None)
  Receive Date: 20120509
  Receipt Date: 20120426
  Transmission Date: 20120825
  Serious: Yes (Other)
  Sender: FDA-Public Use
  Company Number: US-SHIONOGI, INC-2011000164

PATIENT
  Sex: Female

DRUGS (1)
  1. EPINEPHRINE [Suspect]
     Dosage: UNK
     Dates: start: 20110901, end: 20110901

REACTIONS (2)
  - DEVICE FAILURE [None]
  - PRODUCT QUALITY ISSUE [None]
